FAERS Safety Report 13648196 (Version 1)
Quarter: 2017Q2

REPORT INFORMATION
  Report Type: Spontaneous
  Country: US (occurrence: US)
  Receive Date: 20170613
  Receipt Date: 20170613
  Transmission Date: 20170830
  Serious: Yes (Other)
  Sender: FDA-Public Use
  Company Number: US-ASTRAZENECA-2017SE59307

PATIENT
  Age: 803 Month
  Sex: Female

DRUGS (22)
  1. NEXIUM [Suspect]
     Active Substance: ESOMEPRAZOLE MAGNESIUM
     Route: 048
  2. COD-LIVER OIL [Concomitant]
     Active Substance: FISH OIL
     Route: 048
  3. ARIMIDEX [Suspect]
     Active Substance: ANASTROZOLE
     Route: 048
     Dates: start: 200701
  4. FASLODEX [Suspect]
     Active Substance: FULVESTRANT
     Route: 030
     Dates: start: 201404
  5. AROMASIN [Suspect]
     Active Substance: EXEMESTANE
     Route: 065
  6. ZOMETA [Concomitant]
     Active Substance: ZOLEDRONIC ACID
     Dosage: 4 MG/5ML
     Route: 042
  7. RESTORIL [Concomitant]
     Active Substance: TEMAZEPAM
     Route: 048
  8. VITAMIN E [Concomitant]
     Active Substance: .ALPHA.-TOCOPHEROL
     Route: 048
  9. XANAX [Suspect]
     Active Substance: ALPRAZOLAM
     Route: 048
  10. VITAMIN C [Concomitant]
     Active Substance: ASCORBIC ACID
     Route: 048
  11. DURAGESIC [Concomitant]
     Active Substance: FENTANYL
     Dosage: 12 MCG/HR
     Route: 062
  12. FEMARA [Concomitant]
     Active Substance: LETROZOLE
     Route: 048
  13. CALCIUM CARBONATE. [Concomitant]
     Active Substance: CALCIUM CARBONATE
     Route: 048
  14. IBRANCE [Suspect]
     Active Substance: PALBOCICLIB
     Route: 048
     Dates: start: 201601
  15. VITAMIN D [Concomitant]
     Active Substance: CHOLECALCIFEROL
     Route: 048
  16. ZOCOR [Concomitant]
     Active Substance: SIMVASTATIN
     Route: 048
  17. ALDACTONE [Suspect]
     Active Substance: SPIRONOLACTONE
     Route: 048
  18. ZOFRAN [Concomitant]
     Active Substance: ONDANSETRON HYDROCHLORIDE
     Route: 048
  19. ZOLOFT [Suspect]
     Active Substance: SERTRALINE HYDROCHLORIDE
     Route: 048
  20. ULTRAM [Concomitant]
     Active Substance: TRAMADOL HYDROCHLORIDE
     Route: 048
  21. ELIQUIS [Concomitant]
     Active Substance: APIXABAN
     Route: 048
  22. SENOKOT [Concomitant]
     Active Substance: SENNOSIDES
     Route: 048

REACTIONS (5)
  - Back pain [Unknown]
  - Fatigue [Unknown]
  - Asthenia [Unknown]
  - Bone disorder [Unknown]
  - Pulmonary embolism [Unknown]

NARRATIVE: CASE EVENT DATE: 201512
